FAERS Safety Report 17750232 (Version 2)
Quarter: 2020Q4

REPORT INFORMATION
  Report Type: Spontaneous
  Country: US (occurrence: US)
  Receive Date: 20200506
  Receipt Date: 20201106
  Transmission Date: 20210113
  Serious: Yes (Other)
  Sender: FDA-Public Use
  Company Number: US-PFIZER INC-2020181281

PATIENT
  Age: 64 Year
  Sex: Female

DRUGS (3)
  1. SUTENT [Suspect]
     Active Substance: SUNITINIB MALATE
     Indication: SKIN CANCER
     Dosage: 50 MG, CYCLIC, [TAKE 1 CAPSULE BY MOUTH ONCE DAILY ON DAYS 1 - 14 EVERY 21 DAYS]
     Route: 048
     Dates: start: 202002
  2. SUTENT [Suspect]
     Active Substance: SUNITINIB MALATE
     Indication: BONE NEOPLASM
  3. SUTENT [Suspect]
     Active Substance: SUNITINIB MALATE
     Indication: SOFT TISSUE NEOPLASM

REACTIONS (5)
  - Nausea [Unknown]
  - Off label use [Unknown]
  - Nephrolithiasis [Unknown]
  - Product use in unapproved indication [Unknown]
  - Product dose omission issue [Unknown]

NARRATIVE: CASE EVENT DATE: 202002
